FAERS Safety Report 7474831-8 (Version None)
Quarter: 2011Q2

REPORT INFORMATION
  Report Type: 
  Country: None (occurrence: None)
  Receive Date: 20110512
  Receipt Date: 20110405
  Transmission Date: 20111010
  Serious: Yes (Other)
  Sender: FDA-Public Use
  Company Number: US-BAYER-201034601NA

PATIENT
  Age: 46 Year
  Sex: Female
  Weight: 63.492 kg

DRUGS (8)
  1. CALCIUM [CALCIUM] [Concomitant]
  2. MULTI-VITAMINS [Concomitant]
  3. NEXIUM [Concomitant]
     Indication: GASTROOESOPHAGEAL REFLUX DISEASE
  4. YASMIN [Suspect]
     Indication: PRODUCT USED FOR UNKNOWN INDICATION
     Route: 048
     Dates: start: 20010901, end: 20070615
  5. SYNTHROID [Concomitant]
     Indication: HYPOTHYROIDISM
  6. ALLEGRA [Concomitant]
     Indication: MULTIPLE ALLERGIES
  7. YAZ [Suspect]
     Indication: PRODUCT USED FOR UNKNOWN INDICATION
     Route: 048
     Dates: start: 20010901, end: 20070615
  8. LYSINE [Concomitant]

REACTIONS (2)
  - GALLBLADDER DISORDER [None]
  - BILIARY DYSKINESIA [None]
